FAERS Safety Report 5005571-2 (Version None)
Quarter: 2006Q2

REPORT INFORMATION
  Report Type: 
  Country: None (occurrence: None)
  Receive Date: 20060512
  Receipt Date: 20060509
  Transmission Date: 20061013
  Serious: Yes (Life-Threatening, Hospitalization)
  Sender: FDA-Public Use
  Company Number: 200610423GDS

PATIENT
  Age: 52 Year
  Sex: Female

DRUGS (21)
  1. AVELOX [Suspect]
     Dosage: 400 MG, QD, ORAL
     Route: 048
     Dates: start: 20030224, end: 20030306
  2. BIAXIN XL [Suspect]
     Indication: COUGH
     Dosage: 1 G, QD, ORAL
     Route: 048
     Dates: start: 20030216, end: 20030223
  3. NEORAL [Suspect]
     Indication: PANCREAS TRANSPLANT
     Dosage: 100 MG, BID, ORAL
     Route: 048
     Dates: start: 19890101
  4. NEORAL [Suspect]
     Indication: RENAL TRANSPLANT
     Dosage: 100 MG, BID, ORAL
     Route: 048
     Dates: start: 19890101
  5. ZOCOR [Suspect]
     Indication: HYPERCHOLESTEROLAEMIA
     Dosage: 20 MG, QD, ORAL
     Route: 048
     Dates: start: 20021201
  6. ACETAMINOPHEN [Concomitant]
  7. ATENOLOL [Concomitant]
  8. AZATHIOPRINE [Concomitant]
  9. CALCIUM CARBONATE [Concomitant]
  10. CLONAZEPAM [Concomitant]
  11. FOSAMAX [Concomitant]
  12. IMDUR [Concomitant]
  13. NORFLOXACIN [Concomitant]
  14. NOVASEN [Concomitant]
  15. PREDNISONE [Concomitant]
  16. SODIUM BICARBONATE [Concomitant]
  17. SYNTHROID [Concomitant]
  18. VITAMIN D [Concomitant]
  19. VITAMIN E [Concomitant]
  20. XANAX [Concomitant]
  21. ALENDRONATE SODIUM [Concomitant]

REACTIONS (4)
  - DRUG INTERACTION [None]
  - IMMUNOSUPPRESSANT DRUG LEVEL INCREASED [None]
  - RENAL FAILURE ACUTE [None]
  - RHABDOMYOLYSIS [None]
